FAERS Safety Report 13735581 (Version 2)
Quarter: 2017Q4

REPORT INFORMATION
  Report Type: Spontaneous
  Country: JP (occurrence: JP)
  Receive Date: 20170710
  Receipt Date: 20171013
  Transmission Date: 20180320
  Serious: Yes (Disabling, Other)
  Sender: FDA-Public Use
  Company Number: JP-GILEAD-2017-0281934

PATIENT
  Age: 4 Year
  Sex: Male

DRUGS (6)
  1. ADCIRCA [Suspect]
     Active Substance: TADALAFIL
     Indication: PULMONARY ARTERIAL PRESSURE ABNORMAL
     Dosage: 12 MG, QD
     Route: 048
     Dates: start: 20140420, end: 20140724
  2. PANALDINE [Concomitant]
     Active Substance: TICLOPIDINE HYDROCHLORIDE
     Dosage: UNK
  3. BERAPROST SODIUM [Concomitant]
     Active Substance: BERAPROST SODIUM
  4. BAKTAR [Concomitant]
     Active Substance: SULFAMETHOXAZOLE\TRIMETHOPRIM
     Dosage: UNK
  5. SOTACOR [Concomitant]
     Active Substance: SOTALOL HYDROCHLORIDE
  6. AMBRISENTAN [Suspect]
     Active Substance: AMBRISENTAN
     Indication: PULMONARY ARTERIAL PRESSURE ABNORMAL
     Dosage: 1.2 MG, QD
     Route: 048
     Dates: start: 20140420, end: 20140724

REACTIONS (4)
  - Cardiac failure congestive [Recovered/Resolved]
  - Drug administered to patient of inappropriate age [Recovered/Resolved]
  - Wrong technique in product usage process [Recovered/Resolved]
  - Off label use [Recovered/Resolved]

NARRATIVE: CASE EVENT DATE: 201404
